FAERS Safety Report 23517881 (Version 1)
Quarter: 2024Q1

REPORT INFORMATION
  Report Type: Spontaneous
  Country: ES (occurrence: ES)
  Receive Date: 20240213
  Receipt Date: 20240213
  Transmission Date: 20240409
  Serious: Yes (Hospitalization)
  Sender: FDA-Public Use
  Company Number: None

PATIENT
  Age: 96 Year
  Sex: Female

DRUGS (6)
  1. LOSARTAN [Suspect]
     Active Substance: LOSARTAN
     Indication: Hypertension
     Dosage: 12.5 MG C/24 H
     Route: 048
     Dates: start: 20160324, end: 20230905
  2. TORSEMIDE [Suspect]
     Active Substance: TORSEMIDE
     Indication: Hypertension
     Dosage: 5.0 MG C/24 H
     Route: 048
     Dates: start: 20210714, end: 20230905
  3. QUETIAPINE [Concomitant]
     Active Substance: QUETIAPINE
     Indication: Hallucination
     Dosage: 60 TABLETS/ STADA
     Route: 048
     Dates: start: 20230629
  4. LEVOTHYROXINE SODIUM [Concomitant]
     Active Substance: LEVOTHYROXINE SODIUM
     Indication: Hypothyroidism
     Dosage: 25.0 MCG A-DE
     Route: 048
     Dates: start: 20150205
  5. CARBIDOPA\LEVODOPA [Suspect]
     Active Substance: CARBIDOPA\LEVODOPA
     Indication: Parkinson^s disease
     Dosage: 25 MG/100 MG/ 100 TABLETS/ 1.0 COMP EVERY 6 HOURS
     Route: 048
     Dates: start: 20171113, end: 20230905
  6. ACETAMINOPHEN [Concomitant]
     Active Substance: ACETAMINOPHEN
     Indication: Back pain
     Dosage: PARACETAMOL KERN PHARMA, 40 TABLETS/ 650.0 MG EVERY 8 HOURS
     Route: 048
     Dates: start: 20230831

REACTIONS (2)
  - Hallucination, visual [Recovered/Resolved]
  - Inappropriate antidiuretic hormone secretion [Recovered/Resolved]

NARRATIVE: CASE EVENT DATE: 20230904
